FAERS Safety Report 24643526 (Version 1)
Quarter: 2024Q4

REPORT INFORMATION
  Report Type: Spontaneous
  Country: US (occurrence: US)
  Receive Date: 20241120
  Receipt Date: 20241120
  Transmission Date: 20250114
  Serious: No
  Sender: SANOFI AVENTIS
  Company Number: US-SA-2024SA334658

PATIENT
  Age: 58 Year
  Sex: Male
  Weight: 83 kg

DRUGS (1)
  1. DUPIXENT [Suspect]
     Active Substance: DUPILUMAB
     Indication: Dermatitis atopic
     Dosage: 300 MG QOW
     Dates: start: 20240810

REACTIONS (6)
  - Eyelid irritation [Unknown]
  - Scab [Unknown]
  - Lacrimation increased [Unknown]
  - Sleep disorder [Unknown]
  - Eye pruritus [Unknown]
  - Dry eye [Unknown]
